FAERS Safety Report 9906560 (Version 2)
Quarter: 2014Q1

REPORT INFORMATION
  Report Type: Report from Study
  Country: US (occurrence: US)
  Receive Date: 20140218
  Receipt Date: 20140220
  Transmission Date: 20141002
  Serious: Yes (Other)
  Sender: FDA-Public Use
  Company Number: US-BAYER-2014-021113

PATIENT
  Age: 76 Year
  Sex: Male

DRUGS (1)
  1. ADEMPAS [Suspect]
     Indication: PULMONARY ARTERIAL HYPERTENSION
     Dosage: 1 MG, TID
     Route: 048
     Dates: start: 20131120

REACTIONS (4)
  - Thinking abnormal [None]
  - Malaise [None]
  - Abnormal behaviour [None]
  - Headache [None]
